FAERS Safety Report 25639285 (Version 1)
Quarter: 2025Q3

REPORT INFORMATION
  Report Type: Spontaneous
  Country: EU (occurrence: EU)
  Receive Date: 20250804
  Receipt Date: 20250804
  Transmission Date: 20251021
  Serious: Yes (Other)
  Sender: JOHNSON AND JOHNSON
  Company Number: EU-CELGENE-FRA-20220104848

PATIENT

DRUGS (5)
  1. TOLODODEKIN ALFA [Suspect]
     Active Substance: TOLODODEKIN ALFA
     Indication: Plasma cell myeloma
     Dosage: CYCLES 1-2
     Route: 042
  2. TOLODODEKIN ALFA [Suspect]
     Active Substance: TOLODODEKIN ALFA
     Dosage: CYCLES 3-6
     Route: 042
  3. TOLODODEKIN ALFA [Suspect]
     Active Substance: TOLODODEKIN ALFA
     Route: 042
  4. DEXAMETHASONE [Suspect]
     Active Substance: DEXAMETHASONE
     Indication: Plasma cell myeloma
     Route: 048
  5. LENALIDOMIDE [Suspect]
     Active Substance: LENALIDOMIDE
     Indication: Plasma cell myeloma
     Route: 048

REACTIONS (16)
  - Pneumonia [Unknown]
  - Neutropenia [Unknown]
  - Leukopenia [Unknown]
  - Thrombocytopenia [Unknown]
  - Cataract [Unknown]
  - Pulmonary embolism [Unknown]
  - Hypokalaemia [Unknown]
  - Myocardial infarction [Unknown]
  - Cardiac arrest [Unknown]
  - Sepsis [Unknown]
  - Lymphopenia [Unknown]
  - Anaemia [Unknown]
  - Infection [Unknown]
  - Hyperglycaemia [Unknown]
  - General physical health deterioration [Unknown]
  - Fatigue [Unknown]
